FAERS Safety Report 9713836 (Version 1)
Quarter: 2013Q4

REPORT INFORMATION
  Report Type: Spontaneous
  Country: CA (occurrence: CA)
  Receive Date: 20131126
  Receipt Date: 20131126
  Transmission Date: 20140711
  Serious: Yes (Life-Threatening)
  Sender: FDA-Public Use
  Company Number: CA-VIIV HEALTHCARE LIMITED-A1050282A

PATIENT
  Age: 62 Year
  Sex: Male
  Weight: 61.4 kg

DRUGS (4)
  1. KIVEXA [Suspect]
     Indication: PRODUCT USED FOR UNKNOWN INDICATION
     Dosage: 1TAB PER DAY
     Route: 048
  2. KALETRA [Concomitant]
  3. PANTOPRAZOLE [Concomitant]
  4. SINGULAIR [Concomitant]

REACTIONS (6)
  - Respiratory distress [Not Recovered/Not Resolved]
  - Burning sensation [Not Recovered/Not Resolved]
  - Dyspnoea [Not Recovered/Not Resolved]
  - Headache [Not Recovered/Not Resolved]
  - Hepatomegaly [Not Recovered/Not Resolved]
  - Skin exfoliation [Not Recovered/Not Resolved]
